FAERS Safety Report 7826287 (Version 3)
Quarter: 2014Q2

REPORT INFORMATION
  Report Type: Spontaneous
  Country: US (occurrence: US)
  Receive Date: 20110224
  Receipt Date: 20140417
  Transmission Date: 20141212
  Serious: Yes (Hospitalization)
  Sender: FDA-Public Use
  Company Number: US-BAYER-2011-015887

PATIENT
  Age: 23 Year
  Sex: Female
  Weight: 65.76 kg

DRUGS (1)
  1. MIRENA [Suspect]
     Indication: CONTRACEPTION
     Dosage: 20 MCG/24HR, CONT
     Route: 015
     Dates: start: 20100303, end: 20110223

REACTIONS (9)
  - Intestinal perforation [None]
  - Uterine perforation [None]
  - Device failure [None]
  - Abdominal pain [None]
  - Pelvic pain [None]
  - Device dislocation [None]
  - Injury [None]
  - Emotional distress [None]
  - Device issue [None]
